FAERS Safety Report 21269526 (Version 1)
Quarter: 2022Q3

REPORT INFORMATION
  Report Type: Spontaneous
  Country: US (occurrence: None)
  Receive Date: 20220829
  Receipt Date: 20220829
  Transmission Date: 20221026
  Serious: Yes (unspecified)
  Sender: FDA-Public Use
  Company Number: None

PATIENT
  Age: 57 Year
  Sex: Female
  Weight: 193.5 kg

DRUGS (16)
  1. VTAMA [Suspect]
     Active Substance: TAPINAROF
     Indication: Psoriasis
     Dosage: FREQUENCY : AT BEDTIME;?
     Route: 061
     Dates: start: 20220825, end: 20220827
  2. DULOXETINE [Concomitant]
     Active Substance: DULOXETINE
  3. GABAPENTIN [Concomitant]
     Active Substance: GABAPENTIN
  4. LISINOPRIL [Concomitant]
     Active Substance: LISINOPRIL
  5. QUETIAPINE [Concomitant]
     Active Substance: QUETIAPINE
  6. BUPROPION [Concomitant]
     Active Substance: BUPROPION
  7. LEVOTHYROXENE [Concomitant]
  8. CLARITIN [Concomitant]
     Active Substance: LORATADINE
  9. VITAMIN D3 [Concomitant]
     Active Substance: CHOLECALCIFEROL
  10. PROBIOTICS NOS [Concomitant]
     Active Substance: PROBIOTICS NOS
  11. VITAMIN K [Concomitant]
     Active Substance: PHYTONADIONE
  12. VITAMIN K [Concomitant]
     Active Substance: PHYTONADIONE
  13. NAC [Concomitant]
  14. VITAMIN B12 [Concomitant]
     Active Substance: CYANOCOBALAMIN
  15. L-CARNITENE [Concomitant]
  16. MAGNESIUM [Concomitant]
     Active Substance: MAGNESIUM

REACTIONS (5)
  - Hypersensitivity [None]
  - Application site pain [None]
  - Application site erythema [None]
  - Urticaria [None]
  - Pruritus [None]

NARRATIVE: CASE EVENT DATE: 20220827
